FAERS Safety Report 23174918 (Version 3)
Quarter: 2023Q4

REPORT INFORMATION
  Report Type: Spontaneous
  Country: IT (occurrence: IT)
  Receive Date: 20231112
  Receipt Date: 20231212
  Transmission Date: 20240110
  Serious: Yes (Life-Threatening, Hospitalization, Other)
  Sender: FDA-Public Use
  Company Number: IT-Accord-389353

PATIENT
  Age: 71 Year
  Sex: Female
  Weight: 59 kg

DRUGS (2)
  1. CAPECITABINE [Suspect]
     Active Substance: CAPECITABINE
     Indication: Rectal cancer stage III
     Dosage: TOTAL DAILY DOSE OF 2500 MG?CUMULATIVE DOSE UNTIL FIRST REACTION: 42500 MG
     Route: 048
  2. CAPECITABINE [Suspect]
     Active Substance: CAPECITABINE
     Indication: Rectal cancer stage III
     Dosage: TOTAL CAPECITABINE DOSE: 42, 500 MG

REACTIONS (4)
  - Hypokalaemia [Recovered/Resolved]
  - C-reactive protein increased [Recovered/Resolved]
  - Leukopenia [Recovered/Resolved]
  - Enteritis [Recovered/Resolved]
